FAERS Safety Report 6947333-2 (Version None)
Quarter: 2010Q3

REPORT INFORMATION
  Report Type: 
  Country: None (occurrence: None)
  Receive Date: 20100827
  Receipt Date: 20100820
  Transmission Date: 20110219
  Serious: Yes (Other)
  Sender: FDA-Public Use
  Company Number: US-AMGEN-QUU423384

PATIENT
  Sex: Male
  Weight: 90.3 kg

DRUGS (2)
  1. NPLATE [Suspect]
     Indication: IDIOPATHIC THROMBOCYTOPENIC PURPURA
     Route: 058
     Dates: start: 20090709, end: 20100219
  2. NEUPOGEN [Concomitant]
     Route: 058
     Dates: start: 20100101

REACTIONS (2)
  - ACUTE MYELOID LEUKAEMIA RECURRENT [None]
  - THERAPEUTIC RESPONSE DECREASED [None]
